FAERS Safety Report 14170439 (Version 1)
Quarter: 2017Q4

REPORT INFORMATION
  Report Type: Spontaneous
  Country: FR (occurrence: FR)
  Receive Date: 20171108
  Receipt Date: 20171108
  Transmission Date: 20180321
  Serious: Yes (Other)
  Sender: FDA-Public Use
  Company Number: FR-PFIZER INC-2017474680

PATIENT
  Age: 46 Year
  Sex: Female

DRUGS (4)
  1. SPIFEN [Concomitant]
     Active Substance: IBUPROFEN
     Indication: MIGRAINE WITH AURA
  2. RELPAX [Suspect]
     Active Substance: ELETRIPTAN HYDROBROMIDE
     Indication: MIGRAINE WITH AURA
     Dosage: 10 TO 30 INTAKES PER MONTH
     Route: 048
  3. PARACETAMOL [Concomitant]
     Active Substance: ACETAMINOPHEN
     Indication: MIGRAINE WITH AURA
  4. EPITOMAX [Concomitant]
     Active Substance: TOPIRAMATE
     Dosage: UNK
     Dates: start: 201708

REACTIONS (2)
  - Overdose [Unknown]
  - Drug use disorder [Unknown]
